FAERS Safety Report 13869851 (Version 1)
Quarter: 2017Q3

REPORT INFORMATION
  Report Type: Spontaneous
  Country: FR (occurrence: FR)
  Receive Date: 20170815
  Receipt Date: 20170815
  Transmission Date: 20171127
  Serious: Yes (Hospitalization, Other)
  Sender: FDA-Public Use
  Company Number: FR-PFIZER INC-2017345909

PATIENT
  Age: 85 Year
  Sex: Female

DRUGS (12)
  1. COVERAM [Concomitant]
     Active Substance: AMLODIPINE\PERINDOPRIL
     Dosage: UNK
  2. NEO MERCAZOLE [Concomitant]
     Active Substance: CARBIMAZOLE
     Dosage: UNK
  3. EXELON [Concomitant]
     Active Substance: RIVASTIGMINE TARTRATE
     Dosage: UNK
  4. SEROPLEX [Suspect]
     Active Substance: ESCITALOPRAM OXALATE
     Indication: DEPRESSION
     Dosage: 1 DF, DAILY
     Route: 048
     Dates: end: 20170606
  5. DERMOVAL /00337102/ [Concomitant]
     Active Substance: CLOBETASOL PROPIONATE
     Dosage: UNK
  6. DOLIPRANE [Concomitant]
     Active Substance: ACETAMINOPHEN
     Dosage: UNK
  7. LEVOTHYROX [Concomitant]
     Active Substance: LEVOTHYROXINE
     Dosage: UNK
  8. KARDEGIC [Concomitant]
     Active Substance: ASPIRIN LYSINE
     Dosage: UNK
  9. ATENOLOL. [Concomitant]
     Active Substance: ATENOLOL
     Dosage: 50 MG, DAILY
  10. LASILIX /00032601/ [Concomitant]
     Active Substance: FUROSEMIDE
     Dosage: UNK
  11. MODOPAR [Suspect]
     Active Substance: BENSERAZIDE HYDROCHLORIDE\LEVODOPA
     Indication: PARKINSONISM
     Dosage: 1 DF, DAILY
     Route: 048
  12. ZYVOXID [Suspect]
     Active Substance: LINEZOLID
     Indication: DERMO-HYPODERMITIS
     Dosage: 600 MG, 2X/DAY
     Route: 048
     Dates: start: 20170606, end: 20170613

REACTIONS (3)
  - Serotonin syndrome [Recovered/Resolved]
  - Acute kidney injury [Recovering/Resolving]
  - Rhabdomyolysis [Recovering/Resolving]

NARRATIVE: CASE EVENT DATE: 20170612
